FAERS Safety Report 7941547-0 (Version None)
Quarter: 2011Q4

REPORT INFORMATION
  Report Type: 
  Country: None (occurrence: None)
  Receive Date: 20111128
  Receipt Date: 20111121
  Transmission Date: 20120403
  Serious: Yes (Other)
  Sender: FDA-Public Use
  Company Number: US-AMGEN-USASP2011061755

PATIENT
  Age: 53 Year
  Sex: Female

DRUGS (1)
  1. ENBREL [Suspect]
     Indication: PSORIATIC ARTHROPATHY
     Dosage: 50 MG, QWK

REACTIONS (10)
  - HYPERTENSION [None]
  - VISION BLURRED [None]
  - OROPHARYNGEAL PAIN [None]
  - UPPER RESPIRATORY TRACT INFECTION [None]
  - GLAUCOMA [None]
  - PARAESTHESIA [None]
  - PAIN IN EXTREMITY [None]
  - HYPOAESTHESIA [None]
  - DIZZINESS [None]
  - HEADACHE [None]
